FAERS Safety Report 9479597 (Version 12)
Quarter: 2016Q1

REPORT INFORMATION
  Report Type: Report from Study
  Country: BR (occurrence: BR)
  Receive Date: 20130827
  Receipt Date: 20160122
  Transmission Date: 20160526
  Serious: Yes (Death, Hospitalization, Other)
  Sender: FDA-Public Use
  Company Number: PHHY2013BR064568

PATIENT
  Sex: Female
  Weight: 37 kg

DRUGS (14)
  1. EXJADE [Suspect]
     Active Substance: DEFERASIROX
     Dosage: 1 DF (500 MG) AND 2 DF (125 MG), 20 MG/KG DAILY (FASTING)
     Route: 048
  2. EXJADE [Suspect]
     Active Substance: DEFERASIROX
     Dosage: 625 MG, (1 DF 500 MG/ 1 DF 125 MG)
     Route: 048
     Dates: start: 201305
  3. HYDROXYUREA. [Concomitant]
     Active Substance: HYDROXYUREA
     Indication: PRODUCT USED FOR UNKNOWN INDICATION
     Dosage: UNK
     Route: 065
  4. EXJADE [Suspect]
     Active Substance: DEFERASIROX
     Dosage: 500 MG, (1 DF)
     Route: 048
  5. CLONAZEPAM. [Concomitant]
     Active Substance: CLONAZEPAM
     Indication: INSOMNIA
     Dosage: 2 DF, QD
     Route: 048
  6. EXJADE [Suspect]
     Active Substance: DEFERASIROX
     Dosage: 1000 MG, (2 DF OF 500 MG)
     Route: 048
     Dates: end: 201212
  7. EXJADE [Suspect]
     Active Substance: DEFERASIROX
     Dosage: 625 MG, (1 DF 500 MG/ 1 DF 125 MG)
     Route: 048
  8. EXJADE [Suspect]
     Active Substance: DEFERASIROX
     Dosage: 2 DF (500 MG) (25 MG/KG/DAY), DAILY (FASTING)
     Route: 048
  9. METHADONE [Concomitant]
     Active Substance: METHADONE HYDROCHLORIDE
     Indication: PAIN IN EXTREMITY
     Dosage: 3 DF, QD
     Route: 048
  10. EXJADE [Suspect]
     Active Substance: DEFERASIROX
     Indication: SICKLE CELL ANAEMIA
     Dosage: 1125 MG, (2 DF 500 MG/1 DF 125 MG)
     Route: 048
     Dates: start: 20110818
  11. EXJADE [Suspect]
     Active Substance: DEFERASIROX
     Dosage: 1000 MG, (2 DF 500 MG)
     Route: 048
  12. FOLIC ACID. [Concomitant]
     Active Substance: FOLIC ACID
     Indication: SICKLE CELL ANAEMIA
     Dosage: 1 DF, QD
     Route: 048
  13. EXJADE [Suspect]
     Active Substance: DEFERASIROX
     Dosage: 2 DF (500 MG) AND 1 DF OF 125 MG, DAILY (FASTING) (30 MG/KG/DAY)
     Route: 048
  14. EXJADE [Suspect]
     Active Substance: DEFERASIROX
     Dosage: 2 DF (25 MG/KG/DAY), QD
     Route: 048

REACTIONS (21)
  - Concomitant disease aggravated [Unknown]
  - Feeling abnormal [Unknown]
  - Eating disorder [Recovering/Resolving]
  - Cardio-respiratory arrest [Fatal]
  - Drug dependence [Unknown]
  - Nausea [Recovering/Resolving]
  - Neglect of personal appearance [Unknown]
  - Pain in extremity [Unknown]
  - Vomiting [Recovering/Resolving]
  - Limb injury [Unknown]
  - Varicose ulceration [Unknown]
  - Malaise [Unknown]
  - Wound secretion [Unknown]
  - Mydriasis [Unknown]
  - Impaired healing [Unknown]
  - Decreased appetite [Recovering/Resolving]
  - Gastric disorder [Unknown]
  - Diarrhoea [Unknown]
  - Haemoglobin decreased [Unknown]
  - Abdominal pain upper [Recovering/Resolving]
  - Weight decreased [Recovering/Resolving]
